FAERS Safety Report 24267382 (Version 2)
Quarter: 2024Q4

REPORT INFORMATION
  Report Type: Spontaneous
  Country: US (occurrence: US)
  Receive Date: 20240830
  Receipt Date: 20241008
  Transmission Date: 20250115
  Serious: Yes (Hospitalization, Other)
  Sender: AMGEN
  Company Number: US-AMGEN-USASP2024170012

PATIENT
  Age: 28 Year
  Sex: Male

DRUGS (20)
  1. AIMOVIG [Suspect]
     Active Substance: ERENUMAB-AOOE
     Indication: Product used for unknown indication
     Dosage: UNK
     Route: 065
  2. AIMOVIG [Suspect]
     Active Substance: ERENUMAB-AOOE
     Dosage: UNK
     Route: 065
  3. AIMOVIG [Suspect]
     Active Substance: ERENUMAB-AOOE
     Dosage: UNK
     Route: 065
  4. DUPILUMAB [Suspect]
     Active Substance: DUPILUMAB
     Indication: Asthma
     Dosage: 600 MILLIGRAM, QD
     Route: 058
     Dates: start: 20220905
  5. DUPIXENT [Suspect]
     Active Substance: DUPILUMAB
     Indication: Product used for unknown indication
     Dosage: UNK
     Route: 065
  6. AZELASTINE [Concomitant]
     Active Substance: AZELASTINE
     Dosage: UNK
  7. BUDESONIDE [Concomitant]
     Active Substance: BUDESONIDE
     Dosage: UNK
  8. FORMOTEROL FUMARATE [Concomitant]
     Active Substance: FORMOTEROL FUMARATE
     Dosage: UNK
  9. FIORICET [Concomitant]
     Active Substance: ACETAMINOPHEN\BUTALBITAL\CAFFEINE
     Indication: Headache
     Dosage: UNK
  10. DULOXETINE [Concomitant]
     Active Substance: DULOXETINE
     Dosage: UNK
  11. FLUOCINONIDE [Concomitant]
     Active Substance: FLUOCINONIDE
  12. GABAPENTIN [Concomitant]
     Active Substance: GABAPENTIN
  13. IPRATROPIUM BROMIDE [Concomitant]
     Active Substance: IPRATROPIUM BROMIDE
  14. Sulfate de ferrous [Concomitant]
  15. KETOCONAZOLE [Concomitant]
     Active Substance: KETOCONAZOLE
  16. LIDOCAINE [Concomitant]
     Active Substance: LIDOCAINE
  17. METOPROLOL SUCCINATE [Concomitant]
     Active Substance: METOPROLOL SUCCINATE
  18. RIMEGEPANT SULFATE [Concomitant]
     Active Substance: RIMEGEPANT SULFATE
  19. ZOLMITRIPTAN [Concomitant]
     Active Substance: ZOLMITRIPTAN
  20. ACETAZOLAMIDE [Concomitant]
     Active Substance: ACETAZOLAMIDE

REACTIONS (12)
  - Concussion [Recovering/Resolving]
  - Loss of consciousness [Not Recovered/Not Resolved]
  - Road traffic accident [Recovering/Resolving]
  - Back injury [Not Recovered/Not Resolved]
  - Limb injury [Not Recovered/Not Resolved]
  - Haemophobia [Not Recovered/Not Resolved]
  - Wrong technique in product usage process [Unknown]
  - Pruritus [Unknown]
  - Injection site haemorrhage [Recovering/Resolving]
  - Injection site swelling [Recovering/Resolving]
  - Injection site pain [Unknown]
  - Injection site reaction [Unknown]

NARRATIVE: CASE EVENT DATE: 20220101
